FAERS Safety Report 15412823 (Version 2)
Quarter: 2018Q4

REPORT INFORMATION
  Report Type: Not Available
  Country: US (occurrence: US)
  Receive Date: 20180921
  Receipt Date: 20181009
  Transmission Date: 20190204
  Serious: Yes (Death, Hospitalization)
  Sender: FDA-Public Use
  Company Number: US-NEUROCRINE BIOSCIENCES INC.-2018NBI02851

PATIENT
  Age: 83 Year
  Sex: Female

DRUGS (12)
  1. FUMARATE [Concomitant]
  2. SEROQUEL [Suspect]
     Active Substance: QUETIAPINE FUMARATE
     Indication: PRODUCT USED FOR UNKNOWN INDICATION
     Dosage: 25 MG TWICE A DAY OR THREE TIMES A DAY
  3. INGREZZA [Suspect]
     Active Substance: VALBENAZINE
     Indication: TARDIVE DYSKINESIA
     Route: 048
     Dates: start: 20180523, end: 20180728
  4. INGREZZA [Suspect]
     Active Substance: VALBENAZINE
     Route: 048
  5. ALENDRONATE SODIUM. [Concomitant]
     Active Substance: ALENDRONATE SODIUM
  6. CALCIUM [Concomitant]
     Active Substance: CALCIUM
  7. GINGKO BILOBA [Concomitant]
     Active Substance: GINKGO
  8. CLONAZEPAM. [Concomitant]
     Active Substance: CLONAZEPAM
  9. NAMENDA XR [Concomitant]
     Active Substance: MEMANTINE HYDROCHLORIDE
  10. DONEPEZIL. [Concomitant]
     Active Substance: DONEPEZIL
  11. QUETIAPINE. [Concomitant]
     Active Substance: QUETIAPINE
  12. ATORVASTATIN [Concomitant]
     Active Substance: ATORVASTATIN

REACTIONS (4)
  - Death [Fatal]
  - Hospitalisation [Unknown]
  - Malaise [Not Recovered/Not Resolved]
  - Nausea [Not Recovered/Not Resolved]

NARRATIVE: CASE EVENT DATE: 2018
